FAERS Safety Report 19025151 (Version 1)
Quarter: 2021Q1

REPORT INFORMATION
  Report Type: Spontaneous
  Country: US (occurrence: US)
  Receive Date: 20210316
  Receipt Date: 20210316
  Transmission Date: 20210420
  Serious: Yes (Life-Threatening, Hospitalization)
  Sender: FDA-Public Use
  Company Number: None

PATIENT
  Age: 34 Year
  Sex: Male
  Weight: 98.88 kg

DRUGS (1)
  1. CLOZAPINE (CARACO) (CLOZAPINE (CARACO) 100MG TAB) [Suspect]
     Active Substance: CLOZAPINE
     Indication: SCHIZOAFFECTIVE DISORDER
     Route: 048
     Dates: start: 20180613, end: 20180711

REACTIONS (1)
  - Agranulocytosis [None]

NARRATIVE: CASE EVENT DATE: 20180711
